FAERS Safety Report 4416269-3 (Version None)
Quarter: 2004Q3

REPORT INFORMATION
  Report Type: 
  Country: None (occurrence: None)
  Receive Date: 20040803
  Receipt Date: 20040722
  Transmission Date: 20050211
  Serious: Yes (Other)
  Sender: FDA-Public Use
  Company Number: 2004-03262

PATIENT
  Sex: Female

DRUGS (3)
  1. OXYTROL [Suspect]
     Indication: HYPERTONIC BLADDER
     Dosage: SEE IMAGE
     Route: 062
     Dates: start: 20040624, end: 20040707
  2. OXYTROL [Suspect]
     Indication: HYPERTONIC BLADDER
     Dosage: SEE IMAGE
     Route: 062
     Dates: start: 20040708, end: 20040716
  3. MULTIVITAMIN [Concomitant]

REACTIONS (3)
  - BALANCE DISORDER [None]
  - CONVULSION [None]
  - DRUG INEFFECTIVE [None]
